FAERS Safety Report 7419090-7 (Version None)
Quarter: 2011Q2

REPORT INFORMATION
  Report Type: 
  Country: None (occurrence: None)
  Receive Date: 20110415
  Receipt Date: 20110413
  Transmission Date: 20111010
  Serious: Yes (Other)
  Sender: FDA-Public Use
  Company Number: FR-PFIZER INC-2011036206

PATIENT
  Age: 50 Year
  Sex: Male

DRUGS (3)
  1. PLAVIX [Suspect]
     Dosage: UNK
  2. TAHOR [Suspect]
     Dosage: UNK
  3. KARDEGIC [Concomitant]
     Dosage: UNK

REACTIONS (1)
  - ERYTHEMA [None]
